FAERS Safety Report 4320751-7 (Version None)
Quarter: 2004Q1

REPORT INFORMATION
  Report Type: 
  Country: None (occurrence: None)
  Receive Date: 20040315
  Receipt Date: 20031204
  Transmission Date: 20041129
  Serious: No
  Sender: FDA-Public Use
  Company Number: 2003184181US

PATIENT
  Age: 71 Year
  Sex: Female
  Weight: 65.3 kg

DRUGS (4)
  1. BEXTRA [Suspect]
     Indication: INTERVERTEBRAL DISC PROTRUSION
     Dosage: 1 QD, ORAL
     Route: 048
     Dates: start: 20031027, end: 20031107
  2. LABETALOL HCL [Concomitant]
  3. CAPTOPRIL [Concomitant]
  4. PLAVIX [Concomitant]

REACTIONS (2)
  - DRUG INEFFECTIVE [None]
  - PERIPHERAL COLDNESS [None]
